FAERS Safety Report 23023496 (Version 1)
Quarter: 2023Q4

REPORT INFORMATION
  Report Type: Spontaneous
  Country: US (occurrence: US)
  Receive Date: 20231003
  Receipt Date: 20231003
  Transmission Date: 20240110
  Serious: Yes (Hospitalization)
  Sender: FDA-Public Use
  Company Number: US-TEVA-2023-US-2930666

PATIENT
  Age: 63 Year
  Sex: Female

DRUGS (4)
  1. PREDNISONE [Suspect]
     Active Substance: PREDNISONE
     Indication: Rheumatoid arthritis
     Dosage: MONTHLY TAPER REGIMEN OF LOW-DOSE FROM 15MG TO 5MG
     Route: 048
  2. DULOXETINE [Concomitant]
     Active Substance: DULOXETINE
     Indication: Major depression
     Dosage: 120 MILLIGRAM DAILY;
     Route: 048
  3. BUSPIRONE [Concomitant]
     Active Substance: BUSPIRONE HYDROCHLORIDE
     Indication: Major depression
     Dosage: 10 MILLIGRAM DAILY; AT NIGHT
     Route: 048
  4. TRAZODONE [Concomitant]
     Active Substance: TRAZODONE HYDROCHLORIDE
     Indication: Major depression
     Dosage: 150 MILLIGRAM DAILY; AT NIGHT
     Route: 048

REACTIONS (1)
  - Substance-induced psychotic disorder [Recovering/Resolving]
